FAERS Safety Report 22600379 (Version 3)
Quarter: 2023Q4

REPORT INFORMATION
  Report Type: Spontaneous
  Country: US (occurrence: None)
  Receive Date: 20230614
  Receipt Date: 20231109
  Transmission Date: 20240109
  Serious: Yes (Hospitalization, Other)
  Sender: FDA-Public Use
  Company Number: US-ROCHE-3363896

PATIENT
  Sex: Female
  Weight: 63.56 kg

DRUGS (3)
  1. RITUXAN [Suspect]
     Active Substance: RITUXIMAB
     Indication: Autoimmune thyroiditis
     Route: 042
     Dates: start: 20230516
  2. RITUXAN [Suspect]
     Active Substance: RITUXIMAB
     Indication: Encephalopathy
  3. RITUXAN [Suspect]
     Active Substance: RITUXIMAB
     Indication: Autoimmune thyroiditis
     Route: 065
     Dates: start: 20230519, end: 20230519

REACTIONS (31)
  - Neck pain [Unknown]
  - Facial pain [Unknown]
  - Discomfort [Unknown]
  - Facial discomfort [Unknown]
  - Lip disorder [Unknown]
  - Oral disorder [Unknown]
  - Head discomfort [Unknown]
  - Trigeminal neuralgia [Unknown]
  - Sensitive skin [Unknown]
  - Insomnia [Unknown]
  - Burning sensation [Unknown]
  - Ear discomfort [Unknown]
  - Headache [Unknown]
  - Pyrexia [Unknown]
  - Arthralgia [Unknown]
  - Hypoaesthesia [Unknown]
  - White blood cell count increased [Unknown]
  - Antibody test abnormal [Unknown]
  - Off label use [Unknown]
  - Neuralgia [Not Recovered/Not Resolved]
  - Hypophysitis [Not Recovered/Not Resolved]
  - Cerebrospinal fluid leakage [Unknown]
  - Ocular discomfort [Not Recovered/Not Resolved]
  - Alopecia [Not Recovered/Not Resolved]
  - Streptococcal infection [Unknown]
  - Fungal infection [Unknown]
  - Meningitis aseptic [Unknown]
  - Depression [Not Recovered/Not Resolved]
  - Necrosis [Unknown]
  - Anaemia [Unknown]
  - Platelet count increased [Unknown]

NARRATIVE: CASE EVENT DATE: 20230516
